FAERS Safety Report 5310001-7 (Version None)
Quarter: 2007Q2

REPORT INFORMATION
  Report Type: 
  Country: None (occurrence: None)
  Receive Date: 20070427
  Receipt Date: 20070420
  Transmission Date: 20071010
  Serious: Yes (Hospitalization)
  Sender: FDA-Public Use
  Company Number: FR-ELI_LILLY_AND_COMPANY-FR200704004710

PATIENT
  Age: 76 Year
  Sex: Female

DRUGS (6)
  1. FORTEO [Suspect]
     Indication: OSTEOPOROSIS
     Dosage: 20 UG, DAILY (1/D)
     Route: 058
     Dates: start: 20060316, end: 20070307
  2. FORTEO [Suspect]
     Dosage: 20 UG, DAILY (1/D)
     Route: 058
     Dates: start: 20070311
  3. ZESTRIL [Concomitant]
     Dosage: 20 MG, DAILY (1/D)
     Route: 065
     Dates: start: 19900101
  4. VASTAREL [Concomitant]
     Dosage: 2 D/F, DAILY (1/D)
  5. LASIX [Concomitant]
     Dosage: 20 MG, DAILY (1/D)
  6. EZETROL [Concomitant]
     Dosage: 1 D/F, EACH EVENING

REACTIONS (2)
  - DYSPNOEA [None]
  - PERICARDITIS [None]
